FAERS Safety Report 9581809 (Version 1)
Quarter: 2013Q4

REPORT INFORMATION
  Report Type: Report from Study
  Country: US (occurrence: US)
  Receive Date: 20131002
  Receipt Date: 20131002
  Transmission Date: 20140711
  Serious: Yes (Hospitalization)
  Sender: FDA-Public Use
  Company Number: US-VERTEX PHARMACEUTICALS INC-2013-010127

PATIENT
  Age: 43 Year
  Sex: Male

DRUGS (3)
  1. VX-770 [Suspect]
     Indication: CYSTIC FIBROSIS
     Dosage: 150 MG, BID
     Route: 048
     Dates: start: 20120718
  2. PREDNISONE [Concomitant]
     Dosage: UNK
  3. OTHER PRESCRIBED TREATMENTS [Concomitant]
     Dosage: UNK

REACTIONS (3)
  - Dehydration [Recovered/Resolved]
  - Oxygen saturation decreased [Recovered/Resolved]
  - Influenza [Recovered/Resolved]
